FAERS Safety Report 19273903 (Version 1)
Quarter: 2021Q2

REPORT INFORMATION
  Report Type: Spontaneous
  Country: US (occurrence: US)
  Receive Date: 20210518
  Receipt Date: 20210518
  Transmission Date: 20210717
  Serious: Yes (Hospitalization)
  Sender: FDA-Public Use
  Company Number: None

PATIENT
  Age: 66 Year
  Sex: Female

DRUGS (4)
  1. MULTI?VIT [Concomitant]
     Active Substance: VITAMINS
  2. FOLIC ACID. [Concomitant]
     Active Substance: FOLIC ACID
  3. CALCIUM [Concomitant]
     Active Substance: CALCIUM
  4. COPAXONE [Suspect]
     Active Substance: GLATIRAMER ACETATE
     Indication: MULTIPLE SCLEROSIS
     Dosage: OTHER FREQUENCY:TIW;?
     Route: 058
     Dates: start: 20131104

REACTIONS (2)
  - Shoulder operation [None]
  - Intentional dose omission [None]

NARRATIVE: CASE EVENT DATE: 20210507
